FAERS Safety Report 9805543 (Version 1)
Quarter: 2014Q1

REPORT INFORMATION
  Report Type: Spontaneous
  Country: US (occurrence: US)
  Receive Date: 20140109
  Receipt Date: 20140109
  Transmission Date: 20141002
  Serious: Yes (Other)
  Sender: FDA-Public Use
  Company Number: US-PURDUE-USA-2014-0109893

PATIENT
  Age: 63 Year
  Sex: Female

DRUGS (3)
  1. OXYCONTIN (NDA 22-272) [Suspect]
     Indication: PAIN
     Route: 048
  2. OXYCODONE HYDROCHLORIDE (SIMILAR TO NDA 22-272) [Suspect]
     Indication: PAIN
     Dosage: UNK TABLET, DAILY
     Route: 048
  3. BUTRANS [Concomitant]
     Indication: SURGERY
     Dosage: 5 MCG/HR, WEEKLY
     Route: 062
     Dates: start: 201311, end: 20140101

REACTIONS (1)
  - Hip arthroplasty [Unknown]
